FAERS Safety Report 20736497 (Version 2)
Quarter: 2022Q3

REPORT INFORMATION
  Report Type: Spontaneous
  Country: US (occurrence: US)
  Receive Date: 20220421
  Receipt Date: 20220818
  Transmission Date: 20221026
  Serious: No
  Sender: FDA-Public Use
  Company Number: US-PFIZER INC-202200113429

PATIENT
  Age: 69 Year
  Sex: Female

DRUGS (1)
  1. IBRANCE [Suspect]
     Active Substance: PALBOCICLIB
     Indication: Breast cancer female
     Dosage: 125 MG, CYCLIC [ONCE DAILY FOR 21 DAYS ON, THEN 7 DAYS OFF]
     Route: 048
     Dates: start: 20210507

REACTIONS (4)
  - Product dose omission issue [Unknown]
  - Hot flush [Unknown]
  - Dry skin [Unknown]
  - Red blood cell count decreased [Unknown]
